FAERS Safety Report 25204294 (Version 2)
Quarter: 2025Q2

REPORT INFORMATION
  Report Type: Spontaneous
  Country: US (occurrence: US)
  Receive Date: 20250416
  Receipt Date: 20250417
  Transmission Date: 20250717
  Serious: Yes (Death)
  Sender: ELI LILLY AND CO
  Company Number: US-ELI_LILLY_AND_COMPANY-US202504011109

PATIENT
  Age: 76 Year
  Sex: Female

DRUGS (1)
  1. VERZENIO [Suspect]
     Active Substance: ABEMACICLIB
     Indication: Breast cancer
     Route: 065
     Dates: start: 20250305

REACTIONS (1)
  - Malignant neoplasm progression [Fatal]
